FAERS Safety Report 18418610 (Version 1)
Quarter: 2020Q4

REPORT INFORMATION
  Report Type: Spontaneous
  Country: US (occurrence: US)
  Receive Date: 20201023
  Receipt Date: 20201023
  Transmission Date: 20210114
  Serious: Yes (Other)
  Sender: FDA-Public Use
  Company Number: US-ASTRAZENECA-2020SF36905

PATIENT
  Age: 23441 Day
  Sex: Female
  Weight: 117.9 kg

DRUGS (4)
  1. NYSTATIN. [Concomitant]
     Active Substance: NYSTATIN
     Dates: start: 20201016
  2. DOXYCYCLINE. [Concomitant]
     Active Substance: DOXYCYCLINE
  3. AMOXICILLIN. [Concomitant]
     Active Substance: AMOXICILLIN
     Dates: end: 20201015
  4. BYDUREON [Suspect]
     Active Substance: EXENATIDE
     Indication: GLYCOSYLATED HAEMOGLOBIN
     Route: 058

REACTIONS (11)
  - Lacrimal disorder [Unknown]
  - Vision blurred [Unknown]
  - Vasculitis [Unknown]
  - Spinal compression fracture [Unknown]
  - Oral fungal infection [Unknown]
  - Nausea [Unknown]
  - Nasal valve collapse [Unknown]
  - Dry mouth [Unknown]
  - Dental caries [Unknown]
  - Pneumonia [Not Recovered/Not Resolved]
  - Arthritis [Unknown]

NARRATIVE: CASE EVENT DATE: 20200201
